FAERS Safety Report 5158646-1 (Version None)
Quarter: 2006Q4

REPORT INFORMATION
  Report Type: 
  Country: None (occurrence: None)
  Receive Date: 20061128
  Receipt Date: 20061117
  Transmission Date: 20070319
  Serious: Yes (Disabling)
  Sender: FDA-Public Use
  Company Number: FR-ELI_LILLY_AND_COMPANY-FR200611003789

PATIENT
  Age: 40 Year
  Sex: Male

DRUGS (1)
  1. CIALIS [Suspect]
     Indication: ERECTILE DYSFUNCTION
     Dosage: 10 MG, AS NEEDED
     Route: 048
     Dates: start: 20060501, end: 20060829

REACTIONS (2)
  - RETINAL VEIN OCCLUSION [None]
  - VISUAL ACUITY REDUCED [None]
